FAERS Safety Report 8141129-4 (Version None)
Quarter: 2012Q1

REPORT INFORMATION
  Report Type: 
  Country: None (occurrence: None)
  Receive Date: 20120103
  Receipt Date: 20111101
  Transmission Date: 20120608
  Serious: No
  Sender: FDA-Public Use
  Company Number: AE-2011-001491

PATIENT
  Age: 59 Year
  Sex: Male
  Weight: 65.7716 kg

DRUGS (3)
  1. PEGASYS [Concomitant]
  2. RIBAVIRIN [Concomitant]
  3. INCIVEK [Suspect]
     Dosage: 2250 (750 MG, 1 IN 8 HR), ORAL
     Route: 048
     Dates: start: 20110912

REACTIONS (7)
  - DIZZINESS [None]
  - HEADACHE [None]
  - FEELING ABNORMAL [None]
  - ANXIETY [None]
  - VOMITING [None]
  - ANAL PRURITUS [None]
  - NAUSEA [None]
